FAERS Safety Report 8791749 (Version 2)
Quarter: 2013Q4

REPORT INFORMATION
  Report Type: Spontaneous
  Country: US (occurrence: US)
  Receive Date: 20120918
  Receipt Date: 20131031
  Transmission Date: 20140711
  Serious: Yes (Other)
  Sender: FDA-Public Use
  Company Number: US-009507513-1209USA005885

PATIENT
  Age: 30 Year
  Sex: Female

DRUGS (2)
  1. SAPHRIS [Suspect]
     Dosage: 10 MG, BID
     Route: 060
  2. DILANTIN-125 [Interacting]
     Dosage: UNKNOWN

REACTIONS (3)
  - Anticonvulsant drug level decreased [Unknown]
  - Convulsion [Unknown]
  - Drug interaction [Unknown]
